FAERS Safety Report 9659770 (Version 5)
Quarter: 2014Q4

REPORT INFORMATION
  Report Type: Spontaneous
  Country: US (occurrence: None)
  Receive Date: 20131029
  Receipt Date: 20141107
  Transmission Date: 20150529
  Serious: Yes (Hospitalization, Other)
  Sender: FDA-Public Use
  Company Number: US-000822

PATIENT
  Age: 74 Year
  Sex: Male

DRUGS (2)
  1. SOLUTIONS FOR PARENTERAL NUTRITION [Concomitant]
     Active Substance: AMINO ACIDS\DEXTROSE\ELECTROLYTES NOS
  2. GATTEX [Suspect]
     Active Substance: TEDUGLUTIDE\WATER
     Indication: SHORT-BOWEL SYNDROME
     Dosage: FREQU: NA SUBCUTANEOUS
     Route: 058
     Dates: start: 201307, end: 201307

REACTIONS (28)
  - Osteomyelitis [None]
  - Localised oedema [None]
  - Fall [None]
  - Device related infection [None]
  - Fatigue [None]
  - Bacteraemia [None]
  - Dehydration [None]
  - Spinal cord abscess [None]
  - Haemorrhage coronary artery [None]
  - Arteriosclerosis [None]
  - Portal vein thrombosis [None]
  - Coronary artery stenosis [None]
  - Cardiac failure congestive [None]
  - Dilatation ventricular [None]
  - Peripheral artery aneurysm [None]
  - Brunner^s gland hyperplasia [None]
  - Aortic stenosis [None]
  - Oedema peripheral [None]
  - Sudden death [None]
  - Arterial rupture [None]
  - Cardiomyopathy [None]
  - Myocardial ischaemia [None]
  - Death [None]
  - Ejection fraction decreased [None]
  - Face oedema [None]
  - Atrial fibrillation [None]
  - Back pain [None]
  - Intervertebral discitis [None]

NARRATIVE: CASE EVENT DATE: 201310
